FAERS Safety Report 21483582 (Version 1)
Quarter: 2022Q4

REPORT INFORMATION
  Report Type: Spontaneous
  Country: SA (occurrence: SA)
  Receive Date: 20221020
  Receipt Date: 20221020
  Transmission Date: 20230113
  Serious: Yes (Hospitalization, Other)
  Sender: FDA-Public Use
  Company Number: SA-MSNLABS-2022MSNLIT01252

PATIENT

DRUGS (5)
  1. LACOSAMIDE [Suspect]
     Active Substance: LACOSAMIDE
     Indication: Status epilepticus
     Route: 048
  2. LEVETIRACETAM [Concomitant]
     Active Substance: LEVETIRACETAM
     Indication: Status epilepticus
     Route: 048
  3. PHENYTOIN [Concomitant]
     Active Substance: PHENYTOIN
     Indication: Status epilepticus
     Route: 048
  4. PERAMPANEL [Concomitant]
     Active Substance: PERAMPANEL
     Indication: Status epilepticus
     Route: 048
  5. PHENOBARBITAL [Concomitant]
     Active Substance: PHENOBARBITAL
     Indication: Status epilepticus
     Dosage: SINGLE DOSE
     Route: 065

REACTIONS (1)
  - Tachycardia [Not Recovered/Not Resolved]
